FAERS Safety Report 7999798-5 (Version None)
Quarter: 2011Q4

REPORT INFORMATION
  Report Type: 
  Country: None (occurrence: None)
  Receive Date: 20111222
  Receipt Date: 20111214
  Transmission Date: 20120403
  Serious: Yes (Other)
  Sender: FDA-Public Use
  Company Number: US-BIOGENIDEC-2011BI029205

PATIENT
  Sex: Female

DRUGS (3)
  1. IMMUNOSUPPRESIVE THERAPY [Concomitant]
     Indication: MULTIPLE SCLEROSIS
  2. AVONEX [Suspect]
     Route: 030
  3. AVONEX [Suspect]
     Indication: MULTIPLE SCLEROSIS
     Route: 030
     Dates: start: 20000501

REACTIONS (3)
  - THYROID CANCER STAGE IV [None]
  - VOCAL CORD PARALYSIS [None]
  - SALIVARY GLAND MASS [None]
